FAERS Safety Report 25938892 (Version 1)
Quarter: 2025Q4

REPORT INFORMATION
  Report Type: Report from Study
  Country: US (occurrence: US)
  Receive Date: 20251019
  Receipt Date: 20251019
  Transmission Date: 20260118
  Serious: Yes (Hospitalization)
  Sender: ABBVIE
  Company Number: US-ABBVIE-6504972

PATIENT
  Age: 76 Year
  Sex: Female

DRUGS (1)
  1. LINZESS [Suspect]
     Active Substance: LINACLOTIDE
     Indication: Product used for unknown indication
     Route: 048
     Dates: start: 20240927

REACTIONS (6)
  - Pulmonary oedema [Unknown]
  - Dyspnoea [Not Recovered/Not Resolved]
  - Cardiac failure congestive [Unknown]
  - Asthma [Unknown]
  - Hypertension [Unknown]
  - Respiratory distress [Unknown]

NARRATIVE: CASE EVENT DATE: 20250929
